FAERS Safety Report 5414694-5 (Version None)
Quarter: 2007Q3

REPORT INFORMATION
  Report Type: 
  Country: None (occurrence: None)
  Receive Date: 20070813
  Receipt Date: 20070726
  Transmission Date: 20080115
  Serious: Yes (Hospitalization)
  Sender: FDA-Public Use
  Company Number: 2007BI003795

PATIENT
  Age: 42 Year
  Sex: Female

DRUGS (1)
  1. NATALIZUMAB [Suspect]
     Indication: MULTIPLE SCLEROSIS
     Dosage: 300 MG;QM;IV
     Route: 042
     Dates: start: 20061219, end: 20070501

REACTIONS (9)
  - ARTHRITIS [None]
  - ASTHENIA [None]
  - COGNITIVE DISORDER [None]
  - COORDINATION ABNORMAL [None]
  - DRUG HYPERSENSITIVITY [None]
  - DYSARTHRIA [None]
  - RASH [None]
  - RELAPSING-REMITTING MULTIPLE SCLEROSIS [None]
  - SICCA SYNDROME [None]
